FAERS Safety Report 4855127-7 (Version None)
Quarter: 2005Q4

REPORT INFORMATION
  Report Type: 
  Country: None (occurrence: None)
  Receive Date: 20051214
  Receipt Date: 20051130
  Transmission Date: 20060501
  Serious: Yes (Hospitalization)
  Sender: FDA-Public Use
  Company Number: 220152

PATIENT
  Age: 15 Year
  Sex: Female

DRUGS (3)
  1. AVASTIN [Suspect]
     Indication: RENAL CELL CARCINOMA STAGE UNSPECIFIED
  2. VINCRISTINE [Concomitant]
  3. CHEMOTHERAPY NOS (ANTINEOPLASTIC AGENT NOS) [Concomitant]

REACTIONS (4)
  - CONVULSION [None]
  - HYPERTENSIVE EMERGENCY [None]
  - PROTEINURIA [None]
  - RENAL FAILURE ACUTE [None]
